FAERS Safety Report 4446908-2 (Version None)
Quarter: 2004Q3

REPORT INFORMATION
  Report Type: 
  Country: None (occurrence: None)
  Receive Date: 20040908
  Receipt Date: 20040902
  Transmission Date: 20050211
  Serious: Yes (Hospitalization)
  Sender: FDA-Public Use
  Company Number: A044-002-005163

PATIENT
  Age: 70 Year
  Sex: Female

DRUGS (1)
  1. ARICEPT [Suspect]
     Indication: DEMENTIA
     Dosage: TITRATED UP TO 20 MG DAILY, THEN TITRATED TO DISCONTINUATION AFTER ONSET OF EVENT, ORAL
     Route: 048
     Dates: start: 20000101

REACTIONS (10)
  - ANXIETY [None]
  - BRADYKINESIA [None]
  - DELUSION [None]
  - DEMENTIA [None]
  - DEPRESSION [None]
  - EXTRAPYRAMIDAL DISORDER [None]
  - GAIT DISTURBANCE [None]
  - HALLUCINATION [None]
  - MASKED FACIES [None]
  - MUSCLE RIGIDITY [None]
